FAERS Safety Report 7798373-5 (Version None)
Quarter: 2011Q4

REPORT INFORMATION
  Report Type: 
  Country: None (occurrence: None)
  Receive Date: 20111005
  Receipt Date: 20111003
  Transmission Date: 20120403
  Serious: Yes (Other)
  Sender: FDA-Public Use
  Company Number: IE-PFIZER INC-2011234849

PATIENT
  Age: 30 Year
  Sex: Female

DRUGS (3)
  1. BECLOMETASONE DIPROPIONATE [Concomitant]
  2. VENTIDE [Concomitant]
     Route: 055
  3. SERTRALINE HYDROCHLORIDE [Suspect]
     Indication: DEPRESSION
     Dosage: 100 MG, UNK
     Route: 048
     Dates: start: 20090201

REACTIONS (2)
  - LIP SWELLING [None]
  - RASH [None]
